FAERS Safety Report 8580383-1 (Version None)
Quarter: 2012Q3

REPORT INFORMATION
  Report Type: 
  Country: None (occurrence: None)
  Receive Date: 20120808
  Receipt Date: 20120806
  Transmission Date: 20120928
  Serious: Yes (Other)
  Sender: FDA-Public Use
  Company Number: GB-ABBOTT-12P-167-0965657-00

PATIENT
  Age: 7 Year
  Sex: Female
  Weight: 32.2 kg

DRUGS (4)
  1. THE 50:50 OINTMENT [Concomitant]
     Indication: PRODUCT USED FOR UNKNOWN INDICATION
  2. HUMIRA [Suspect]
     Indication: JUVENILE ARTHRITIS
     Route: 051
     Dates: start: 20100710, end: 20120702
  3. ELOCON [Concomitant]
     Indication: PRODUCT USED FOR UNKNOWN INDICATION
  4. EUMOVATE [Concomitant]
     Indication: PRODUCT USED FOR UNKNOWN INDICATION

REACTIONS (2)
  - ALOPECIA AREATA [None]
  - ECZEMA [None]
